FAERS Safety Report 5897099-2 (Version None)
Quarter: 2008Q3

REPORT INFORMATION
  Report Type: 
  Country: None (occurrence: None)
  Receive Date: 20080924
  Receipt Date: 20080618
  Transmission Date: 20090109
  Serious: Yes (Other)
  Sender: FDA-Public Use
  Company Number: US-ASTRAZENECA-2008UW12358

PATIENT
  Age: 57 Year
  Sex: Female

DRUGS (8)
  1. SEROQUEL [Suspect]
     Indication: BIPOLAR DISORDER
     Route: 048
  2. ABILIFY [Suspect]
  3. REQUIP [Concomitant]
  4. DEPAKOTE [Concomitant]
  5. KLONOPIN [Concomitant]
  6. LANTIS [Concomitant]
  7. GLUCOPHAGE [Concomitant]
  8. GLUCOTROL [Concomitant]

REACTIONS (1)
  - EXTRAPYRAMIDAL DISORDER [None]
